FAERS Safety Report 9523110 (Version 2)
Quarter: 2013Q4

REPORT INFORMATION
  Report Type: Report from Study
  Country: US (occurrence: US)
  Receive Date: 20130913
  Receipt Date: 20131004
  Transmission Date: 20140711
  Serious: Yes (Hospitalization)
  Sender: FDA-Public Use
  Company Number: US-BRISTOL-MYERS SQUIBB COMPANY-19364280

PATIENT
  Age: 73 Year
  Sex: Female
  Weight: 101.5 kg

DRUGS (12)
  1. CARBOPLATIN [Suspect]
     Indication: NON-SMALL CELL LUNG CANCER
     Dosage: AUC=5 ON DAYS 1 OF 3 WEEK CYCLE
     Route: 042
     Dates: start: 20130425, end: 20130815
  2. GEMZAR [Suspect]
     Indication: NON-SMALL CELL LUNG CANCER
     Dosage: ON DAYS 1 AND 8 OF 3 WEEK CYCLE, RECT DOSE ON 15-AUG-13
     Route: 042
     Dates: start: 20130425
  3. FOLIC ACID [Concomitant]
  4. VITAMIN B12 [Concomitant]
  5. DEXAMETHASONE [Concomitant]
     Dates: start: 20130425
  6. METOPROLOL [Concomitant]
     Dates: start: 201103
  7. HYDRALAZINE [Concomitant]
     Dates: start: 201103
  8. LASIX [Concomitant]
     Dates: start: 201103
  9. KLOR-CON [Concomitant]
     Dates: start: 201203
  10. ADVAIR [Concomitant]
     Dates: start: 201103
  11. ALBUTEROL [Concomitant]
     Dates: start: 201001
  12. SIMVASTATIN [Concomitant]
     Dates: start: 201212

REACTIONS (1)
  - Myocardial infarction [Recovered/Resolved]
